FAERS Safety Report 18202860 (Version 1)
Quarter: 2020Q3

REPORT INFORMATION
  Report Type: Spontaneous
  Country: US (occurrence: US)
  Receive Date: 20200827
  Receipt Date: 20200827
  Transmission Date: 20201103
  Serious: No
  Sender: FDA-Public Use
  Company Number: US-LUPIN PHARMACEUTICALS INC.-2019-08245

PATIENT
  Age: 53 Year
  Sex: Female
  Weight: 69 kg

DRUGS (5)
  1. ADVAIR HFA [Concomitant]
     Active Substance: FLUTICASONE PROPIONATE\SALMETEROL XINAFOATE
     Indication: ASTHMA
     Dosage: UNK UNK, BID (1 PUFF)
     Route: 065
  2. XOLAIR [Concomitant]
     Active Substance: OMALIZUMAB
     Indication: IMMUNE ENHANCEMENT THERAPY
     Dosage: UNK (MONTHLY)
     Route: 065
  3. VASELINE [PARAFFIN SOFT] [Concomitant]
     Indication: DRY SKIN
     Dosage: UNK UNK, PRN
     Route: 061
  4. AMLODIPINE BESYLATE TABLETS USP, 2.5 MG [Suspect]
     Active Substance: AMLODIPINE BESYLATE
     Indication: BLOOD PRESSURE ABNORMAL
     Dosage: 2.5 MILLIGRAM, QD
     Route: 048
     Dates: start: 201905
  5. DYMISTA [Concomitant]
     Active Substance: AZELASTINE HYDROCHLORIDE\FLUTICASONE PROPIONATE
     Indication: NASAL CONGESTION
     Dosage: UNK, PRN
     Route: 045

REACTIONS (5)
  - Pruritus [Not Recovered/Not Resolved]
  - Scratch [Not Recovered/Not Resolved]
  - Urticaria [Not Recovered/Not Resolved]
  - Rash [Not Recovered/Not Resolved]
  - Mechanical urticaria [Not Recovered/Not Resolved]

NARRATIVE: CASE EVENT DATE: 20190730
